FAERS Safety Report 11807872 (Version 3)
Quarter: 2016Q1

REPORT INFORMATION
  Report Type: Spontaneous
  Country: US (occurrence: US)
  Receive Date: 20151207
  Receipt Date: 20160108
  Transmission Date: 20160525
  Serious: Yes (Life-Threatening, Hospitalization)
  Sender: FDA-Public Use
  Company Number: US-UNITED THERAPEUTICS-UNT-2015-014302

PATIENT
  Age: 39 Year
  Sex: Male
  Weight: 108.84 kg

DRUGS (4)
  1. OPSUMIT [Concomitant]
     Active Substance: MACITENTAN
     Indication: PRODUCT USED FOR UNKNOWN INDICATION
  2. TRACLEER [Concomitant]
     Active Substance: BOSENTAN
     Indication: PRODUCT USED FOR UNKNOWN INDICATION
  3. REMODULIN [Suspect]
     Active Substance: TREPROSTINIL
     Indication: PULMONARY HYPERTENSION
     Dosage: 0.05961 ?G/KG, CONTINUING
     Route: 058
     Dates: start: 20150630
  4. ADCIRCA [Concomitant]
     Active Substance: TADALAFIL
     Indication: PRODUCT USED FOR UNKNOWN INDICATION

REACTIONS (11)
  - Nausea [Unknown]
  - Right ventricular failure [Unknown]
  - Diarrhoea [Unknown]
  - Infusion site pain [Recovered/Resolved]
  - Fluid retention [Unknown]
  - Pulmonary arterial hypertension [Unknown]
  - Acute kidney injury [Unknown]
  - Sinusitis [Unknown]
  - Cardiogenic shock [Unknown]
  - Urinary retention [Not Recovered/Not Resolved]
  - Infusion site erythema [Recovered/Resolved]

NARRATIVE: CASE EVENT DATE: 201511
